FAERS Safety Report 6180857-7 (Version None)
Quarter: 2009Q2

REPORT INFORMATION
  Report Type: 
  Country: None (occurrence: None)
  Receive Date: 20090504
  Receipt Date: 20090325
  Transmission Date: 20091009
  Serious: Yes (Hospitalization)
  Sender: FDA-Public Use
  Company Number: KV200801455

PATIENT
  Age: 73 Year
  Sex: Female

DRUGS (5)
  1. MORPHINE SULFATE [Suspect]
     Indication: FIBROMYALGIA
     Dosage: 30 MG, BID, ORAL
     Route: 048
     Dates: start: 20030101, end: 20080101
  2. CLONAZEPAM [Concomitant]
  3. RYTHMOL /00546301/ (PROPAFENONE) [Concomitant]
  4. VITAMINS /90003601/ [Concomitant]
  5. STOOL SOFTENER (DOCUSATE SODIUM) [Concomitant]

REACTIONS (12)
  - ATRIAL FIBRILLATION [None]
  - CONFUSIONAL STATE [None]
  - DIARRHOEA [None]
  - HEPATIC FAILURE [None]
  - HEPATIC ISCHAEMIA [None]
  - MENTAL STATUS CHANGES [None]
  - MULTIPLE DRUG OVERDOSE [None]
  - PRODUCT QUALITY ISSUE [None]
  - RENAL FAILURE ACUTE [None]
  - RHABDOMYOLYSIS [None]
  - SOMNOLENCE [None]
  - SUPRAVENTRICULAR EXTRASYSTOLES [None]
